FAERS Safety Report 9249348 (Version 1)
Quarter: 2013Q2

REPORT INFORMATION
  Report Type: Spontaneous
  Country: US (occurrence: US)
  Receive Date: 20130423
  Receipt Date: 20130423
  Transmission Date: 20140414
  Serious: No
  Sender: FDA-Public Use
  Company Number: US-009507513-1211USA004513

PATIENT
  Sex: Female
  Weight: 124.26 kg

DRUGS (1)
  1. NUVARING [Suspect]
     Indication: CONTRACEPTION
     Dosage: UNK
     Route: 067
     Dates: start: 201109, end: 20121029

REACTIONS (2)
  - Metrorrhagia [Recovered/Resolved]
  - Incorrect drug administration duration [Unknown]
